FAERS Safety Report 9349403 (Version 2)
Quarter: 2013Q3

REPORT INFORMATION
  Report Type: Report from Study
  Country: JP (occurrence: JP)
  Receive Date: 20130614
  Receipt Date: 20130717
  Transmission Date: 20140515
  Serious: Yes (Hospitalization)
  Sender: FDA-Public Use
  Company Number: JP-009507513-1305JPN007140

PATIENT
  Age: 39 Year
  Sex: Female
  Weight: 50 kg

DRUGS (5)
  1. GANIRELIX ACETATE [Suspect]
     Indication: PREVENTION OF PREMATURE OVULATION
     Dosage: 0.25 MG, QD
     Route: 059
     Dates: start: 20110203, end: 20110204
  2. FOLLISTIM INJECTION 75 [Suspect]
     Indication: IN VITRO FERTILISATION
     Dosage: 150 (UNDER 1000UNIT), QD
     Route: 058
     Dates: start: 20110129, end: 20110204
  3. CLOMID [Concomitant]
     Indication: IN VITRO FERTILISATION
     Dosage: 100 MG, QD
     Route: 048
     Dates: start: 20110129, end: 20110202
  4. GONADOTROPIN, CHORIONIC [Concomitant]
     Indication: IN VITRO FERTILISATION
     Dosage: 10 (THOUSAND-MILLION UNIT), QD
     Route: 030
     Dates: start: 20110205, end: 20110205
  5. GONADOTROPIN, CHORIONIC [Concomitant]
     Indication: OVULATION INDUCTION

REACTIONS (1)
  - Abortion [Recovered/Resolved]
